FAERS Safety Report 16827481 (Version 1)
Quarter: 2019Q3

REPORT INFORMATION
  Report Type: Spontaneous
  Country: US (occurrence: US)
  Receive Date: 20190729
  Receipt Date: 20190729
  Transmission Date: 20191005
  Serious: No
  Sender: FDA-Public Use
  Company Number: None

PATIENT
  Age: 52 Year
  Sex: Female

DRUGS (1)
  1. ACTEMRA [Suspect]
     Active Substance: TOCILIZUMAB
     Dates: start: 201907, end: 201907

REACTIONS (3)
  - Hypersensitivity [None]
  - Headache [None]
  - Swollen tongue [None]

NARRATIVE: CASE EVENT DATE: 20190701
